FAERS Safety Report 24402999 (Version 1)
Quarter: 2024Q4

REPORT INFORMATION
  Report Type: Spontaneous
  Country: RU (occurrence: RU)
  Receive Date: 20241007
  Receipt Date: 20241007
  Transmission Date: 20250114
  Serious: No
  Sender: ROCHE
  Company Number: RU-ROCHE-3457668

PATIENT
  Age: 35 Year
  Sex: Male

DRUGS (6)
  1. OBINUTUZUMAB [Suspect]
     Active Substance: OBINUTUZUMAB
     Indication: Follicular lymphoma
     Dosage: 6 CYCLES WERE COMPLETED
     Route: 042
     Dates: start: 202206, end: 202210
  2. OBINUTUZUMAB [Suspect]
     Active Substance: OBINUTUZUMAB
     Dosage: REMISSION MAINTENANCE THERAPY CYCLE
     Route: 042
     Dates: start: 20221122, end: 20230907
  3. CYCLOPHOSPHAMIDE [Suspect]
     Active Substance: CYCLOPHOSPHAMIDE
     Indication: Follicular lymphoma
     Dosage: 6 CYCLES WERE COMPLETED
     Route: 065
     Dates: start: 202206, end: 202210
  4. DOXORUBICIN [Suspect]
     Active Substance: DOXORUBICIN
     Indication: Follicular lymphoma
     Dosage: 6 CYCLES WERE COMPLETED
     Route: 065
     Dates: start: 202206, end: 202210
  5. VINCRISTINE [Suspect]
     Active Substance: VINCRISTINE
     Indication: Follicular lymphoma
     Dosage: 6 CYCLES WERE COMPLETED
     Route: 065
     Dates: start: 202206, end: 202210
  6. PREDNISOLONE [Suspect]
     Active Substance: PREDNISOLONE
     Indication: Follicular lymphoma
     Dosage: 6 CYCLES WERE COMPLETED
     Route: 065
     Dates: start: 202206, end: 202210

REACTIONS (1)
  - Positron emission tomogram abnormal [Unknown]
